FAERS Safety Report 9032978 (Version 1)
Quarter: 2013Q1

REPORT INFORMATION
  Report Type: Report from Study
  Country: CA (occurrence: CA)
  Receive Date: 20130128
  Receipt Date: 20130128
  Transmission Date: 20140127
  Serious: Yes (Hospitalization)
  Sender: FDA-Public Use
  Company Number: CA-JNJFOC-20130110300

PATIENT
  Age: 38 Year
  Sex: Female
  Weight: 54.8 kg

DRUGS (8)
  1. REMICADE [Suspect]
     Indication: RHEUMATOID ARTHRITIS
     Route: 042
     Dates: start: 20021014
  2. METHOTREXATE [Concomitant]
     Route: 065
  3. CELEBREX [Concomitant]
     Route: 065
  4. PARIET [Concomitant]
     Route: 065
  5. M-ESLON [Concomitant]
     Route: 065
  6. VITAMIN [Concomitant]
     Route: 065
  7. THYROID PREPARATIONS [Concomitant]
     Route: 065
  8. METOPROLOL [Concomitant]
     Route: 065

REACTIONS (2)
  - Toe amputation [Recovering/Resolving]
  - Rheumatoid arthritis [Recovering/Resolving]
